FAERS Safety Report 26045761 (Version 2)
Quarter: 2025Q4

REPORT INFORMATION
  Report Type: Report from Study
  Country: CA (occurrence: CA)
  Receive Date: 20251114
  Receipt Date: 20251210
  Transmission Date: 20260118
  Serious: Yes (Disabling)
  Sender: NOVARTIS
  Company Number: CA-002147023-NVSC2025CA141259

PATIENT
  Age: 34 Year
  Sex: Female

DRUGS (3)
  1. KESIMPTA [Suspect]
     Active Substance: OFATUMUMAB
     Indication: Relapsing-remitting multiple sclerosis
     Dosage: 20 MG, QMO
     Route: 058
     Dates: start: 20230411
  2. KESIMPTA [Suspect]
     Active Substance: OFATUMUMAB
     Dosage: UNK, (EVERY 5 WEEK)
     Route: 058
  3. KESIMPTA [Suspect]
     Active Substance: OFATUMUMAB
     Dosage: UNK (FREQUENCY REDUCED, INCREASED INTERVAL 5 WEEKS)
     Route: 065
     Dates: start: 202509

REACTIONS (9)
  - Musculoskeletal discomfort [Recovered/Resolved]
  - Lymphadenopathy [Recovering/Resolving]
  - Fatigue [Recovering/Resolving]
  - Lymphocyte count decreased [Recovering/Resolving]
  - Decreased immune responsiveness [Unknown]
  - Neck pain [Unknown]
  - Off label use [Unknown]
  - Serum ferritin decreased [Unknown]
  - Iron deficiency [Recovering/Resolving]

NARRATIVE: CASE EVENT DATE: 20250101
